FAERS Safety Report 15028100 (Version 1)
Quarter: 2018Q2

REPORT INFORMATION
  Report Type: Spontaneous
  Country: DE (occurrence: DE)
  Receive Date: 20180619
  Receipt Date: 20180619
  Transmission Date: 20180711
  Serious: Yes (Hospitalization)
  Sender: FDA-Public Use
  Company Number: DE-TEVA-2018-DE-909483

PATIENT
  Age: 80 Year
  Sex: Male

DRUGS (7)
  1. IVABRADIN [Suspect]
     Active Substance: IVABRADINE
     Dosage: 1-0-1-0
     Route: 065
  2. PANTOPRAZOL [Concomitant]
     Active Substance: PANTOPRAZOLE SODIUM
     Dosage: 1-0-0-0
  3. ATORVASTATIN [Concomitant]
     Active Substance: ATORVASTATIN
     Dosage: 0-0-1-0
  4. RAMIPRIL. [Suspect]
     Active Substance: RAMIPRIL
     Dosage: 1-0-1-0
     Route: 065
  5. ASS 100 [Concomitant]
     Active Substance: ASPIRIN
     Dosage: 1-0-0-0
  6. TORASEMID [Suspect]
     Active Substance: TORSEMIDE
     Dosage: 1-0-0-0
     Route: 065
  7. PHENPROCOUMON [Concomitant]
     Active Substance: PHENPROCOUMON
     Dosage: 0-0-3/4-0

REACTIONS (2)
  - Dizziness [Unknown]
  - Limb discomfort [Unknown]
